FAERS Safety Report 14818348 (Version 2)
Quarter: 2021Q3

REPORT INFORMATION
  Report Type: Spontaneous
  Country: US (occurrence: US)
  Receive Date: 20180427
  Receipt Date: 20210917
  Transmission Date: 20211014
  Serious: Yes (Other)
  Sender: FDA-Public Use
  Company Number: US-TEVA-2018-US-870923

PATIENT
  Age: 63 Year
  Sex: Female

DRUGS (6)
  1. ATORVASTATIN [Concomitant]
     Active Substance: ATORVASTATIN
     Route: 048
  2. DOCETAXEL ACCORD [Suspect]
     Active Substance: DOCETAXEL
     Indication: BREAST CANCER FEMALE
     Dosage: DOSE: 145MG; STRENGTH: 75MG/M2; NO OF CYCLES: 06; FREQUENCY: EVERY THREE WEEKS (80MG 20MG/ML)
     Route: 042
     Dates: start: 201602, end: 201605
  3. CYCLOPHOSPHAMIDE. [Suspect]
     Active Substance: CYCLOPHOSPHAMIDE
     Indication: BREAST CANCER FEMALE
     Dosage: STRENGTH: 600MG/M2; DOSE: 1160MG; FREQUENCY: EVERY THREE WEEKS
     Route: 042
  4. ALOXI [Concomitant]
     Active Substance: PALONOSETRON HYDROCHLORIDE
     Route: 065
  5. DOCETAXEL SAGENT [Suspect]
     Active Substance: DOCETAXEL
     Indication: BREAST CANCER FEMALE
     Dosage: DOSE: 145MG; STRENGTH: 75MG/M2; NO OF CYCLES: 06; FREQUENCY: EVERY THREE WEEKS (20MG 20MG/ML)
     Route: 042
     Dates: start: 201602, end: 201605
  6. NEULASTA [Concomitant]
     Active Substance: PEGFILGRASTIM
     Route: 065

REACTIONS (18)
  - Rash [Recovered/Resolved]
  - Throat irritation [Recovered/Resolved]
  - Swelling face [Recovered/Resolved]
  - Pharyngeal swelling [Recovered/Resolved]
  - Pyrexia [Recovered/Resolved]
  - Nausea [Recovered/Resolved]
  - Hair colour changes [Not Recovered/Not Resolved]
  - Bone pain [Recovered/Resolved]
  - Vomiting [Recovered/Resolved]
  - Feeling abnormal [Recovered/Resolved]
  - Hair texture abnormal [Not Recovered/Not Resolved]
  - Fatigue [Recovered/Resolved]
  - Pain [Recovered/Resolved]
  - Paraesthesia [Recovering/Resolving]
  - Pruritus [Recovered/Resolved]
  - Diarrhoea [Recovered/Resolved]
  - Abdominal pain [Recovered/Resolved]
  - Alopecia [Not Recovered/Not Resolved]

NARRATIVE: CASE EVENT DATE: 2016
